FAERS Safety Report 19822618 (Version 1)
Quarter: 2021Q3

REPORT INFORMATION
  Report Type: Spontaneous
  Country: US (occurrence: US)
  Receive Date: 20210913
  Receipt Date: 20210913
  Transmission Date: 20211014
  Serious: No
  Sender: FDA-Public Use
  Company Number: US-GLOBAL BLOOD THERAPEUTICS INC-US-GBT-21-01915

PATIENT
  Sex: Female

DRUGS (4)
  1. OXBRYTA [Suspect]
     Active Substance: VOXELOTOR
  2. OXBRYTA [Suspect]
     Active Substance: VOXELOTOR
  3. OXBRYTA [Suspect]
     Active Substance: VOXELOTOR
  4. OXBRYTA [Suspect]
     Active Substance: VOXELOTOR
     Indication: PRODUCT USED FOR UNKNOWN INDICATION
     Route: 048

REACTIONS (4)
  - Vomiting [Not Recovered/Not Resolved]
  - Abdominal discomfort [Recovered/Resolved]
  - Off label use [Unknown]
  - Malaise [Recovered/Resolved]
